FAERS Safety Report 18541902 (Version 1)
Quarter: 2020Q4

REPORT INFORMATION
  Report Type: Spontaneous
  Country: DE (occurrence: DE)
  Receive Date: 20201124
  Receipt Date: 20201124
  Transmission Date: 20210114
  Serious: Yes (Other)
  Sender: FDA-Public Use
  Company Number: NVSC2020DE309403

PATIENT
  Sex: Female

DRUGS (2)
  1. HEPARIN [Suspect]
     Active Substance: HEPARIN SODIUM
     Indication: PRODUCT USED FOR UNKNOWN INDICATION
     Dosage: UNK
     Route: 058
  2. ELIQUIS [Suspect]
     Active Substance: APIXABAN
     Indication: PRODUCT USED FOR UNKNOWN INDICATION
     Dosage: UNK (UNAVAILABLE)
     Route: 065

REACTIONS (2)
  - Off label use [Unknown]
  - Shunt thrombosis [Unknown]
